FAERS Safety Report 17780436 (Version 2)
Quarter: 2020Q3

REPORT INFORMATION
  Report Type: Report from Study
  Country: CO (occurrence: CO)
  Receive Date: 20200513
  Receipt Date: 20200916
  Transmission Date: 20201102
  Serious: Yes (Hospitalization)
  Sender: FDA-Public Use
  Company Number: CO-JNJFOC-20200505838

PATIENT
  Age: 65 Year
  Sex: Male
  Weight: 82 kg

DRUGS (11)
  1. VITAMIN C [Concomitant]
     Active Substance: ASCORBIC ACID
  2. METFORMIN [Concomitant]
     Active Substance: METFORMIN HYDROCHLORIDE
  3. ATORVASTATINE                      /01326101/ [Concomitant]
     Active Substance: ATORVASTATIN
     Route: 065
  4. LOSARTAN. [Concomitant]
     Active Substance: LOSARTAN
  5. STELARA [Suspect]
     Active Substance: USTEKINUMAB
     Route: 058
     Dates: start: 20190208, end: 20190513
  6. AMLODIPINE [Concomitant]
     Active Substance: AMLODIPINE BESYLATE
  7. STELARA [Suspect]
     Active Substance: USTEKINUMAB
     Route: 058
     Dates: start: 20191205
  8. METOPROLOL. [Concomitant]
     Active Substance: METOPROLOL
  9. GEMFIBROZIL. [Concomitant]
     Active Substance: GEMFIBROZIL
  10. STELARA [Suspect]
     Active Substance: USTEKINUMAB
     Indication: PSORIASIS
     Route: 058
     Dates: start: 20170913, end: 20180118
  11. AMANTADINE. [Concomitant]
     Active Substance: AMANTADINE HYDROCHLORIDE

REACTIONS (6)
  - Sciatica [Unknown]
  - Kidney infection [Recovering/Resolving]
  - Chest pain [Not Recovered/Not Resolved]
  - Weight decreased [Unknown]
  - Influenza [Recovered/Resolved]
  - Ocular hyperaemia [Recovering/Resolving]

NARRATIVE: CASE EVENT DATE: 20191210
